FAERS Safety Report 8237212-5 (Version None)
Quarter: 2012Q1

REPORT INFORMATION
  Report Type: 
  Country: None (occurrence: None)
  Receive Date: 20120327
  Receipt Date: 20120327
  Transmission Date: 20120608
  Serious: Yes (Other)
  Sender: FDA-Public Use
  Company Number: None

PATIENT
  Age: 34 Year
  Sex: Female
  Weight: 79.378 kg

DRUGS (1)
  1. CLOMID [Suspect]
     Indication: INFERTILITY
     Dosage: 150
     Route: 048
     Dates: start: 20120320, end: 20120324

REACTIONS (6)
  - PYREXIA [None]
  - PAIN [None]
  - HEADACHE [None]
  - VERTIGO [None]
  - HOT FLUSH [None]
  - MOOD ALTERED [None]
